FAERS Safety Report 9040907 (Version 1)
Quarter: 2013Q1

REPORT INFORMATION
  Report Type: Spontaneous
  Country: US (occurrence: None)
  Receive Date: 20130123
  Receipt Date: 20130123
  Transmission Date: 20140127
  Serious: Yes (Hospitalization)
  Sender: FDA-Public Use
  Company Number: None

PATIENT
  Sex: Male
  Weight: 135.9 kg

DRUGS (1)
  1. ALFA 2 INTERFERON 2B (INTRON-A) [Suspect]
     Dosage: 75  MILLION IU
     Dates: end: 20120210

REACTIONS (4)
  - Mental status changes [None]
  - Agitation [None]
  - Belligerence [None]
  - Sexual dysfunction [None]
